FAERS Safety Report 18094698 (Version 2)
Quarter: 2020Q3

REPORT INFORMATION
  Report Type: Spontaneous
  Country: FR (occurrence: FR)
  Receive Date: 20200731
  Receipt Date: 20200907
  Transmission Date: 20201103
  Serious: Yes (Life-Threatening, Other)
  Sender: FDA-Public Use
  Company Number: FR-AMGEN-FRASP2020122899

PATIENT
  Age: 54 Year
  Sex: Male
  Weight: 87 kg

DRUGS (2)
  1. ACETANILIDE;ACETYLSALICYLIC ACID;CAFFEINE;PHENACETIN [Concomitant]
     Dosage: 10 MG, WEEKLY
     Dates: end: 202003
  2. ENBREL [Suspect]
     Active Substance: ETANERCEPT
     Indication: RHEUMATOID ARTHRITIS
     Dosage: 50 MG, WEEKLY
     Route: 058
     Dates: start: 201606, end: 202008

REACTIONS (1)
  - Chronic myeloid leukaemia [Recovering/Resolving]

NARRATIVE: CASE EVENT DATE: 20200226
